FAERS Safety Report 14248407 (Version 1)
Quarter: 2017Q4

REPORT INFORMATION
  Report Type: Spontaneous
  Country: US (occurrence: US)
  Receive Date: 20171202
  Receipt Date: 20171202
  Transmission Date: 20180321
  Serious: Yes (Other)
  Sender: FDA-Public Use
  Company Number: None

PATIENT
  Age: 54 Year
  Sex: Female
  Weight: 59.4 kg

DRUGS (3)
  1. NYSTATIN - TRIAMCINOLONE CREAM [Suspect]
     Active Substance: NYSTATIN\TRIAMCINOLONE
     Indication: SKIN LESION
     Dosage: ?          QUANTITY:5 AS MUCH AS I NEEDE;OTHER FREQUENCY:AS MUCH AS I NEED;?
     Route: 062
  2. NYSTATIN AND TRIAMCINOLONE ACETONIDE [Suspect]
     Active Substance: NYSTATIN\TRIAMCINOLONE ACETONIDE
     Indication: SKIN LESION
     Route: 062
  3. SYNTHROID [Suspect]
     Active Substance: LEVOTHYROXINE SODIUM

REACTIONS (10)
  - Pruritus [None]
  - Joint swelling [None]
  - Swelling face [None]
  - Drug ineffective [None]
  - Pain [None]
  - Peripheral swelling [None]
  - Rash erythematous [None]
  - Erythema [None]
  - Insomnia [None]
  - Steroid withdrawal syndrome [None]

NARRATIVE: CASE EVENT DATE: 20151101
